FAERS Safety Report 9422517 (Version 2)
Quarter: 2013Q3

REPORT INFORMATION
  Report Type: Spontaneous
  Country: US (occurrence: US)
  Receive Date: 20130726
  Receipt Date: 20130903
  Transmission Date: 20140515
  Serious: Yes (Other)
  Sender: FDA-Public Use
  Company Number: US-SANOFI-AVENTIS-2013SA074192

PATIENT
  Age: 76 Year
  Sex: Male
  Weight: 79.37 kg

DRUGS (9)
  1. PLAVIX [Suspect]
     Indication: CEREBROVASCULAR ACCIDENT
     Route: 048
     Dates: end: 20130721
  2. ELIQUIS [Suspect]
     Route: 065
     Dates: start: 20130722, end: 20130808
  3. ASPIRIN [Suspect]
     Route: 065
     Dates: end: 20130721
  4. METOPROLOL [Concomitant]
     Indication: BLOOD PRESSURE
  5. METOPROLOL [Concomitant]
     Indication: BLOOD PRESSURE
  6. LISINOPRIL [Concomitant]
     Indication: TRANSIENT ISCHAEMIC ATTACK
  7. LISINOPRIL [Concomitant]
     Indication: TRANSIENT ISCHAEMIC ATTACK
  8. LIPITOR [Concomitant]
     Indication: ATRIAL FIBRILLATION
  9. ALL OTHER THERAPEUTIC PRODUCTS [Concomitant]

REACTIONS (3)
  - Convulsion [Unknown]
  - Transient ischaemic attack [Unknown]
  - Dizziness [Unknown]
